FAERS Safety Report 24850746 (Version 1)
Quarter: 2025Q1

REPORT INFORMATION
  Report Type: Report from Study
  Country: DE (occurrence: DE)
  Receive Date: 20250116
  Receipt Date: 20250116
  Transmission Date: 20250409
  Serious: Yes (Death, Other)
  Sender: AUROBINDO
  Company Number: DE-Shilpa Medicare Limited-SML-DE-2023-00980

PATIENT

DRUGS (1)
  1. MELPHALAN [Suspect]
     Active Substance: MELPHALAN
     Indication: B-cell lymphoma
     Route: 065

REACTIONS (2)
  - B-cell lymphoma refractory [Fatal]
  - Drug ineffective [Unknown]
